FAERS Safety Report 8097989-9 (Version None)
Quarter: 2012Q1

REPORT INFORMATION
  Report Type: 
  Country: None (occurrence: None)
  Receive Date: 20120128
  Receipt Date: 20110727
  Transmission Date: 20120608
  Serious: Yes (Hospitalization, Other)
  Sender: FDA-Public Use
  Company Number: US-ABBOTT-11P-163-0841942-00

PATIENT
  Sex: Female

DRUGS (12)
  1. ALENDRONATE SODIUM [Concomitant]
     Indication: BONE DISORDER
  2. METFORMIN HCL [Concomitant]
     Indication: DIABETES MELLITUS
  3. VITAMIN D [Concomitant]
     Indication: VITAMIN SUPPLEMENTATION
  4. ZETIA [Concomitant]
     Indication: PRODUCT USED FOR UNKNOWN INDICATION
  5. HUMIRA [Suspect]
     Route: 058
     Dates: start: 20110101
  6. PRAVACHOL [Concomitant]
     Indication: BLOOD CHOLESTEROL INCREASED
  7. HUMIRA [Suspect]
     Indication: PSORIATIC ARTHROPATHY
     Route: 058
     Dates: start: 20060101, end: 20100101
  8. NAPROXEN [Concomitant]
     Indication: PSORIATIC ARTHROPATHY
  9. METHOTREXATE [Concomitant]
     Indication: PSORIATIC ARTHROPATHY
  10. ALTACE [Concomitant]
     Indication: PRODUCT USED FOR UNKNOWN INDICATION
  11. FOLIC ACID [Concomitant]
     Indication: VITAMIN SUPPLEMENTATION
  12. GLYBURIDE [Concomitant]
     Indication: DIABETES MELLITUS
     Dosage: ONLY IF BS OVER 150

REACTIONS (2)
  - BREAST CANCER [None]
  - PAIN [None]
